FAERS Safety Report 18469714 (Version 1)
Quarter: 2020Q4

REPORT INFORMATION
  Report Type: Spontaneous
  Country: JP (occurrence: JP)
  Receive Date: 20201105
  Receipt Date: 20201105
  Transmission Date: 20210114
  Serious: Yes (Other)
  Sender: FDA-Public Use
  Company Number: JP-ALLERGAN-2042545US

PATIENT
  Sex: Male

DRUGS (7)
  1. MIYA-BM [Concomitant]
     Active Substance: CLOSTRIDIUM BUTYRICUM SPORES STRAIN M-55
  2. TOPILORIC [Concomitant]
     Active Substance: TOPIROXOSTAT
  3. EVAMYL [Concomitant]
     Active Substance: LORMETAZEPAM
  4. LITHIUM CARBONATE. [Suspect]
     Active Substance: LITHIUM CARBONATE
     Indication: BIPOLAR I DISORDER
     Dosage: 200 MG, QD
     Route: 048
     Dates: start: 20180704, end: 20180710
  5. ERAKKU [Concomitant]
  6. URSODEOXYCHOLIC ACID - BP [Suspect]
     Active Substance: URSODIOL
     Indication: PRODUCT USED FOR UNKNOWN INDICATION
     Route: 048
  7. LITHIUM CARBONATE. [Suspect]
     Active Substance: LITHIUM CARBONATE
     Indication: MANIA
     Dosage: 400 MG, QD
     Route: 048
     Dates: start: 20180711, end: 202005

REACTIONS (1)
  - Renal impairment [Not Recovered/Not Resolved]
